FAERS Safety Report 5636850-3 (Version None)
Quarter: 2008Q1

REPORT INFORMATION
  Report Type: 
  Country: None (occurrence: None)
  Receive Date: 20080225
  Receipt Date: 20080215
  Transmission Date: 20080703
  Serious: Yes (Other)
  Sender: FDA-Public Use
  Company Number: JP-JNJFOC-20071106521

PATIENT
  Sex: Female
  Weight: 32 kg

DRUGS (7)
  1. ITRIZOLE [Suspect]
     Route: 041
  2. ITRIZOLE [Suspect]
     Indication: BRONCHOPULMONARY ASPERGILLOSIS
     Route: 041
  3. NU-LOTAN [Concomitant]
     Indication: HYPERTENSION
     Route: 048
  4. RIZE [Concomitant]
     Indication: ANXIETY
     Route: 048
  5. VITANEURIN [Concomitant]
     Indication: REFLUX OESOPHAGITIS
     Route: 048
  6. SELBEX [Concomitant]
     Indication: GASTRITIS
     Route: 048
  7. BONALON [Concomitant]
     Indication: OSTEOPOROSIS
     Route: 048

REACTIONS (6)
  - BLOOD PRESSURE INCREASED [None]
  - CARDIAC FAILURE [None]
  - ELECTROCARDIOGRAM QT PROLONGED [None]
  - HEADACHE [None]
  - PLATELET COUNT DECREASED [None]
  - STOMACH DISCOMFORT [None]
